FAERS Safety Report 5537126-5 (Version None)
Quarter: 2007Q4

REPORT INFORMATION
  Report Type: 
  Country: None (occurrence: None)
  Receive Date: 20071205
  Receipt Date: 20071205
  Transmission Date: 20080405
  Serious: Yes (Other)
  Sender: FDA-Public Use
  Company Number: None

PATIENT
  Sex: Female
  Weight: 55.3388 kg

DRUGS (1)
  1. RAPID CLEAR ACNE ELIMINATING SPO 2% SALICYLIC ACIDNEUTROGENA [Suspect]
     Indication: ACNE
     Dosage: GEL OINTMENT APPLIED 1-2 TOP ONCE OR TWICE ONLY
     Route: 061
     Dates: start: 20070715, end: 20070831

REACTIONS (2)
  - ERYTHEMA [None]
  - SKIN EXFOLIATION [None]
